FAERS Safety Report 18306768 (Version 1)
Quarter: 2020Q3

REPORT INFORMATION
  Report Type: Spontaneous
  Country: US (occurrence: US)
  Receive Date: 20200923
  Receipt Date: 20200923
  Transmission Date: 20201103
  Serious: Yes (Hospitalization)
  Sender: FDA-Public Use
  Company Number: None

PATIENT
  Age: 71 Year
  Sex: Male

DRUGS (1)
  1. WARFARIN (WARFARIN NA (EXELAN) 5MG TAB) [Suspect]
     Active Substance: WARFARIN SODIUM
     Indication: ATRIAL FIBRILLATION
     Route: 048

REACTIONS (6)
  - Dyspnoea [None]
  - Haemorrhage [None]
  - Occult blood [None]
  - Fall [None]
  - Asthenia [None]
  - Haemoglobin decreased [None]

NARRATIVE: CASE EVENT DATE: 20190413
